FAERS Safety Report 24017233 (Version 2)
Quarter: 2025Q2

REPORT INFORMATION
  Report Type: Spontaneous
  Country: FR (occurrence: FR)
  Receive Date: 20240627
  Receipt Date: 20250429
  Transmission Date: 20250716
  Serious: Yes (Other)
  Sender: GLAXOSMITHKLINE
  Company Number: FR-GSK-FR2024EME078578

PATIENT

DRUGS (8)
  1. KIVEXA [Suspect]
     Active Substance: ABACAVIR SULFATE\LAMIVUDINE
     Indication: HIV infection
  2. PREZISTA [Suspect]
     Active Substance: DARUNAVIR ETHANOLATE
     Indication: HIV infection
  3. NORVIR [Suspect]
     Active Substance: RITONAVIR
     Indication: HIV infection
  4. AMIKACIN [Suspect]
     Active Substance: AMIKACIN
     Indication: Mycobacterium avium complex infection
  5. AZITHROMYCIN [Suspect]
     Active Substance: AZITHROMYCIN
     Indication: Mycobacterium avium complex infection
     Dates: start: 20240131
  6. RIFABUTIN [Suspect]
     Active Substance: RIFABUTIN
     Indication: Mycobacterium avium complex infection
     Dates: start: 20240131
  7. ETHAMBUTOL [Suspect]
     Active Substance: ETHAMBUTOL HYDROCHLORIDE
     Indication: Mycobacterium avium complex infection
     Dates: start: 20240131
  8. ETHAMBUTOL [Suspect]
     Active Substance: ETHAMBUTOL HYDROCHLORIDE
     Dosage: 1000 MG, QD

REACTIONS (12)
  - Oesophageal candidiasis [Recovering/Resolving]
  - Hydrocephalus [Unknown]
  - Mycobacterium avium complex infection [Recovering/Resolving]
  - Productive cough [Recovering/Resolving]
  - General physical condition abnormal [Recovering/Resolving]
  - Mediastinal mass [Recovering/Resolving]
  - Pulmonary hilum mass [Recovering/Resolving]
  - Lymphadenopathy mediastinal [Recovering/Resolving]
  - Hilar lymphadenopathy [Recovering/Resolving]
  - Inflammation [Recovered/Resolved]
  - Drug monitoring procedure incorrectly performed [Unknown]
  - Exposure during pregnancy [Unknown]

NARRATIVE: CASE EVENT DATE: 20230901
